FAERS Safety Report 8551507-7 (Version None)
Quarter: 2012Q3

REPORT INFORMATION
  Report Type: 
  Country: None (occurrence: None)
  Receive Date: 20120730
  Receipt Date: 20111206
  Transmission Date: 20120928
  Serious: No
  Sender: FDA-Public Use
  Company Number: US-ALLERGAN-1115942US

PATIENT
  Sex: Female

DRUGS (2)
  1. EYELASH ENHANCERS - GREAT LASH [Concomitant]
  2. LATISSE [Suspect]
     Indication: HYPOTRICHOSIS
     Dosage: 2 GTT, QHS
     Route: 061
     Dates: start: 20111001

REACTIONS (2)
  - TRICHORRHEXIS [None]
  - MADAROSIS [None]
